FAERS Safety Report 9274860 (Version 2)
Quarter: 2013Q2

REPORT INFORMATION
  Report Type: Spontaneous
  Country: JP (occurrence: None)
  Receive Date: 20130429
  Receipt Date: 20130520
  Transmission Date: 20140414
  Serious: Yes (Hospitalization)
  Sender: FDA-Public Use
  Company Number: VAL_02305_2013

PATIENT
  Age: 78 Year
  Sex: Female

DRUGS (4)
  1. ROCALTROL [Suspect]
     Indication: OSTEOPOROSIS
     Route: 048
     Dates: start: 20130115, end: 20130320
  2. ELCITONIN [Concomitant]
  3. MUCOSTA [Concomitant]
  4. ANTICOAGULANTS [Concomitant]

REACTIONS (2)
  - Hypercalcaemia [None]
  - Toxicity to various agents [None]
